FAERS Safety Report 5468332-6 (Version None)
Quarter: 2007Q3

REPORT INFORMATION
  Report Type: 
  Country: None (occurrence: None)
  Receive Date: 20070926
  Receipt Date: 20070919
  Transmission Date: 20080115
  Serious: Yes (Other)
  Sender: FDA-Public Use
  Company Number: A0683077A

PATIENT
  Sex: Male

DRUGS (1)
  1. AVANDIA [Suspect]
     Indication: DRUG USE FOR UNKNOWN INDICATION
     Route: 048
     Dates: start: 20010401, end: 20060401

REACTIONS (4)
  - ANXIETY [None]
  - BLINDNESS [None]
  - MYOCARDIAL INFARCTION [None]
  - PAIN [None]
